FAERS Safety Report 19646779 (Version 1)
Quarter: 2021Q3

REPORT INFORMATION
  Report Type: Spontaneous
  Country: IT (occurrence: IT)
  Receive Date: 20210802
  Receipt Date: 20210802
  Transmission Date: 20211014
  Serious: Yes (Hospitalization)
  Sender: FDA-Public Use
  Company Number: IT-PFIZER INC-202100939668

PATIENT
  Age: 41 Year
  Sex: Male

DRUGS (2)
  1. ANSIOLIN [Suspect]
     Active Substance: DIAZEPAM
     Indication: ANXIETY
     Dosage: 100 MG FREQ:{TOTAL};
     Route: 048
     Dates: start: 20210701, end: 20210701
  2. XANAX [Suspect]
     Active Substance: ALPRAZOLAM
     Indication: ANXIETY
     Dosage: 15 MG FREQ:{TOTAL};
     Route: 048
     Dates: start: 20210701, end: 20210701

REACTIONS (4)
  - Speech disorder [Recovered/Resolved]
  - Drug abuse [Recovered/Resolved]
  - Sopor [Recovered/Resolved]
  - Suicide attempt [Recovered/Resolved]

NARRATIVE: CASE EVENT DATE: 20210701
